FAERS Safety Report 4634156-2 (Version None)
Quarter: 2005Q1

REPORT INFORMATION
  Report Type: 
  Country: None (occurrence: None)
  Receive Date: 20050325
  Receipt Date: 20041213
  Transmission Date: 20050727
  Serious: No
  Sender: FDA-Public Use
  Company Number: USA041285994

PATIENT
  Age: 66 Year
  Sex: Female

DRUGS (4)
  1. FORTEO [Suspect]
     Indication: OSTEOPOROSIS
     Dates: start: 20040811
  2. PRILOSEC (OMEPRAZOLE RATIOPHARM) [Concomitant]
  3. MOTRIN [Concomitant]
  4. CALCIUM GLUCONATE [Concomitant]

REACTIONS (3)
  - ASTHENIA [None]
  - INFLUENZA [None]
  - PAIN [None]
